FAERS Safety Report 13797261 (Version 1)
Quarter: 2017Q3

REPORT INFORMATION
  Report Type: Spontaneous
  Country: US (occurrence: US)
  Receive Date: 20170727
  Receipt Date: 20170727
  Transmission Date: 20171127
  Serious: No
  Sender: FDA-Public Use
  Company Number: US-STRIDES ARCOLAB LIMITED-2017SP007930

PATIENT

DRUGS (3)
  1. ORTHO TRI CYCLEN LO [Concomitant]
     Active Substance: ETHINYL ESTRADIOL\NORGESTIMATE
     Indication: CONTRACEPTION
     Dosage: 1 TABLETS, DAILY
     Route: 065
     Dates: end: 2017
  2. MYCOPHENOLATE MOFETIL TABLETS 500 MG [Suspect]
     Active Substance: MYCOPHENOLATE MOFETIL
     Indication: DERMATITIS ATOPIC
     Dosage: 500 MG, TID
     Route: 048
     Dates: start: 20161215, end: 20170430
  3. HYDROXYZINE [Concomitant]
     Active Substance: HYDROXYZINE HYDROCHLORIDE
     Indication: DERMATITIS ATOPIC
     Dosage: 1-4 TABLETS AT BED TIME
     Route: 065
     Dates: start: 201609

REACTIONS (1)
  - Off label use [Unknown]
